FAERS Safety Report 23518264 (Version 1)
Quarter: 2024Q1

REPORT INFORMATION
  Report Type: Spontaneous
  Country: US (occurrence: US)
  Receive Date: 20240213
  Receipt Date: 20240213
  Transmission Date: 20240409
  Serious: Yes (Other)
  Sender: FDA-Public Use
  Company Number: US-PADAGIS-2024PAD00209

PATIENT

DRUGS (1)
  1. BUDESONIDE [Suspect]
     Active Substance: BUDESONIDE
     Indication: Gastrointestinal disorder
     Dosage: UNK
     Route: 065

REACTIONS (4)
  - Colitis microscopic [Unknown]
  - Multiple sclerosis [Unknown]
  - JC virus infection [Unknown]
  - Product use in unapproved indication [Unknown]
